FAERS Safety Report 16066455 (Version 3)
Quarter: 2019Q2

REPORT INFORMATION
  Report Type: Spontaneous
  Country: US (occurrence: US)
  Receive Date: 20190313
  Receipt Date: 20190603
  Transmission Date: 20190711
  Serious: Yes (Other)
  Sender: FDA-Public Use
  Company Number: US-ASTRAZENECA-2019SE11954

PATIENT
  Age: 21165 Day
  Sex: Female
  Weight: 72.6 kg

DRUGS (30)
  1. PRILOSEC OTC [Suspect]
     Active Substance: OMEPRAZOLE MAGNESIUM
     Indication: GASTROOESOPHAGEAL REFLUX DISEASE
     Dosage: PRILOSEC
     Route: 048
  2. NORVASC [Concomitant]
     Active Substance: AMLODIPINE BESYLATE
  3. XANAX [Concomitant]
     Active Substance: ALPRAZOLAM
  4. ZESTRIL [Concomitant]
     Active Substance: LISINOPRIL
  5. PEPCID [Concomitant]
     Active Substance: FAMOTIDINE
  6. ZOLPIDEM TARTRATE. [Concomitant]
     Active Substance: ZOLPIDEM TARTRATE
  7. ZANTAC [Concomitant]
     Active Substance: RANITIDINE HYDROCHLORIDE
  8. PENLAC [Concomitant]
     Active Substance: CICLOPIROX
  9. PROTONIX [Concomitant]
     Active Substance: PANTOPRAZOLE SODIUM
  10. PRILOSEC OTC [Suspect]
     Active Substance: OMEPRAZOLE MAGNESIUM
     Indication: GASTROOESOPHAGEAL REFLUX DISEASE
     Dosage: OMEPRAZOLE
     Route: 048
     Dates: start: 20081020
  11. DUREZOL [Concomitant]
     Active Substance: DIFLUPREDNATE
  12. GABAPENTIN. [Concomitant]
     Active Substance: GABAPENTIN
  13. METOCLOPRAMIDE. [Concomitant]
     Active Substance: METOCLOPRAMIDE
  14. PRILOSEC OTC [Suspect]
     Active Substance: OMEPRAZOLE MAGNESIUM
     Indication: GASTROOESOPHAGEAL REFLUX DISEASE
     Route: 048
     Dates: start: 2011, end: 2018
  15. AMLODIPINE [Concomitant]
     Active Substance: AMLODIPINE BESYLATE
  16. CLOBETASOL [Concomitant]
     Active Substance: CLOBETASOL
  17. LANSOPRAZOL-AMOXICILLIN [Concomitant]
  18. PRILOSEC [Suspect]
     Active Substance: OMEPRAZOLE MAGNESIUM
     Indication: GASTROOESOPHAGEAL REFLUX DISEASE
     Route: 048
  19. PRILOSEC OTC [Suspect]
     Active Substance: OMEPRAZOLE MAGNESIUM
     Indication: GASTROOESOPHAGEAL REFLUX DISEASE
     Dosage: OMEPRAZOLE
     Route: 048
     Dates: start: 20140422
  20. LISINOPRIL. [Concomitant]
     Active Substance: LISINOPRIL
  21. AMBIEN [Concomitant]
     Active Substance: ZOLPIDEM TARTRATE
  22. ASTELIN [Concomitant]
     Active Substance: AZELASTINE HYDROCHLORIDE
  23. ULTRAM [Concomitant]
     Active Substance: TRAMADOL HYDROCHLORIDE
  24. ACETAZOLAMIDE. [Concomitant]
     Active Substance: ACETAZOLAMIDE
  25. DELTASONE [Concomitant]
     Active Substance: PREDNISONE
  26. AMOXICILLIN. [Concomitant]
     Active Substance: AMOXICILLIN
  27. ONDANSETRON [Concomitant]
     Active Substance: ONDANSETRON
  28. MYRBETRIQ [Concomitant]
     Active Substance: MIRABEGRON
  29. ZOFRAN [Concomitant]
     Active Substance: ONDANSETRON HYDROCHLORIDE
  30. PRILOSEC OTC [Suspect]
     Active Substance: OMEPRAZOLE MAGNESIUM
     Indication: GASTROOESOPHAGEAL REFLUX DISEASE
     Route: 048
     Dates: start: 2003

REACTIONS (2)
  - Chronic kidney disease [Not Recovered/Not Resolved]
  - Renal injury [Unknown]

NARRATIVE: CASE EVENT DATE: 20151207
